FAERS Safety Report 12179147 (Version 2)
Quarter: 2019Q2

REPORT INFORMATION
  Report Type: Spontaneous
  Country: US (occurrence: US)
  Receive Date: 20160314
  Receipt Date: 20190510
  Transmission Date: 20190711
  Serious: Yes (Death)
  Sender: FDA-Public Use
  Company Number: US-ASTRAZENECA-2016SE26880

PATIENT
  Age: 25331 Day
  Sex: Female
  Weight: 68 kg

DRUGS (11)
  1. BYETTA [Suspect]
     Active Substance: EXENATIDE
     Route: 065
     Dates: start: 200509, end: 200702
  2. BYETTA [Suspect]
     Active Substance: EXENATIDE
     Dosage: DOSE PEN INJECTION -DAILY (10 MCG/5 MCG)
     Route: 065
     Dates: start: 20060425, end: 200702
  3. LIPITOR [Concomitant]
     Active Substance: ATORVASTATIN CALCIUM
  4. METFORMIN [Concomitant]
     Active Substance: METFORMIN HYDROCHLORIDE
  5. CLINDAMYCIN. [Concomitant]
     Active Substance: CLINDAMYCIN
  6. OXYCODONE [Concomitant]
     Active Substance: OXYCODONE
  7. WARFARIN [Concomitant]
     Active Substance: WARFARIN
  8. CIPROFLOXACIN. [Concomitant]
     Active Substance: CIPROFLOXACIN
  9. DILTIAZEM. [Concomitant]
     Active Substance: DILTIAZEM
  10. ACETAMINOPHEN. [Concomitant]
     Active Substance: ACETAMINOPHEN
  11. FUROSEMIDE. [Concomitant]
     Active Substance: FUROSEMIDE

REACTIONS (2)
  - Pancreatic carcinoma metastatic [Fatal]
  - Pancreatic carcinoma [Fatal]

NARRATIVE: CASE EVENT DATE: 20070122
